FAERS Safety Report 8030708-0 (Version None)
Quarter: 2012Q1

REPORT INFORMATION
  Report Type: 
  Country: None (occurrence: None)
  Receive Date: 20120109
  Receipt Date: 20120104
  Transmission Date: 20120608
  Serious: Yes (Death)
  Sender: FDA-Public Use
  Company Number: PHEH2012US000691

PATIENT
  Sex: Male

DRUGS (5)
  1. GABAPENTIN [Concomitant]
     Dosage: 800 MG, UNK
  2. LISINOPRIL [Concomitant]
     Dosage: 10 MG, UNK
  3. GILENYA [Suspect]
     Dosage: 0.5 MG, QD
     Route: 048
  4. TIZANIDINE HCL [Concomitant]
     Dosage: 4 MG, UNK
  5. TAMSULOSIN HCL [Concomitant]
     Dosage: 0.4 MG, UNK

REACTIONS (1)
  - DEATH [None]
